FAERS Safety Report 9158707 (Version 1)
Quarter: 2013Q1

REPORT INFORMATION
  Report Type: Spontaneous
  Country: GB (occurrence: GB)
  Receive Date: 20130312
  Receipt Date: 20130312
  Transmission Date: 20140127
  Serious: Yes (Other)
  Sender: FDA-Public Use
  Company Number: GB-MYLANLABS-2013S1004733

PATIENT
  Age: 70 Year
  Sex: Female

DRUGS (2)
  1. DIAZEPAM [Suspect]
     Indication: SLEEP DISORDER
  2. DIAZEPAM [Suspect]
     Indication: SLEEP DISORDER

REACTIONS (4)
  - Anxiety [Unknown]
  - Drug dependence [Unknown]
  - Intentional drug misuse [Unknown]
  - Tremor [Unknown]
